FAERS Safety Report 15603367 (Version 4)
Quarter: 2020Q2

REPORT INFORMATION
  Report Type: Report from Study
  Country: US (occurrence: US)
  Receive Date: 20181109
  Receipt Date: 20200616
  Transmission Date: 20200713
  Serious: Yes (Hospitalization, Other)
  Sender: FDA-Public Use
  Company Number: US-ACTELION-A-NJ2018-169034

PATIENT
  Sex: Female
  Weight: 81.63 kg

DRUGS (5)
  1. OPSUMIT [Suspect]
     Active Substance: MACITENTAN
     Indication: PULMONARY ARTERIAL HYPERTENSION
     Dosage: 10 MG, QD
     Route: 048
     Dates: start: 20170928
  2. UPTRAVI [Suspect]
     Active Substance: SELEXIPAG
     Indication: PULMONARY ARTERIAL HYPERTENSION
     Dosage: 1200 MCG, BID
     Route: 048
  3. UPTRAVI [Suspect]
     Active Substance: SELEXIPAG
     Dosage: UNK
     Route: 048
  4. OMEPRAZOLE. [Concomitant]
     Active Substance: OMEPRAZOLE
     Dosage: UNK
  5. ADEMPAS [Concomitant]
     Active Substance: RIOCIGUAT

REACTIONS (10)
  - Dyspepsia [Unknown]
  - Pulmonary oedema [Unknown]
  - Dyspnoea [Unknown]
  - Pain in jaw [Unknown]
  - Diarrhoea [Unknown]
  - Sinusitis [Unknown]
  - Fluid retention [Unknown]
  - Headache [Unknown]
  - Anaemia [Unknown]
  - Seasonal allergy [Unknown]
